FAERS Safety Report 9578489 (Version 1)
Quarter: 2013Q4

REPORT INFORMATION
  Report Type: Spontaneous
  Country: US (occurrence: US)
  Receive Date: 20131001
  Receipt Date: 20131001
  Transmission Date: 20140711
  Serious: No
  Sender: FDA-Public Use
  Company Number: US-AMGEN-USASP2013013250

PATIENT
  Age: 72 Year
  Sex: Female
  Weight: 47.62 kg

DRUGS (10)
  1. ENBREL [Suspect]
     Indication: PRODUCT USED FOR UNKNOWN INDICATION
     Dosage: 50 MG/ML, QWK
     Route: 058
  2. VENLAFAXINE [Concomitant]
     Dosage: 150 MG, UNK
  3. VITAMIN C + E [Concomitant]
     Dosage: UNK
  4. VITAMIN D3 [Concomitant]
     Dosage: 5000 UNIT, UNK
  5. CALCIUM [Concomitant]
     Dosage: 1200 UNK, UNK
  6. FISH OIL [Concomitant]
     Dosage: UNK
  7. ENALAPRIL [Concomitant]
     Dosage: 20 MG, UNK
  8. NIFEDIPINE [Concomitant]
     Dosage: 10 MG, UNK
  9. TRAMADOL HCL [Concomitant]
     Dosage: 50 MG, UNK
  10. MULTI                              /05812401/ [Concomitant]
     Dosage: UNK

REACTIONS (2)
  - Injection site discomfort [Not Recovered/Not Resolved]
  - Injection site pain [Not Recovered/Not Resolved]
